FAERS Safety Report 9395910 (Version 1)
Quarter: 2013Q3

REPORT INFORMATION
  Report Type: Other
  Country: JP (occurrence: JP)
  Receive Date: 20130711
  Receipt Date: 20130711
  Transmission Date: 20140515
  Serious: Yes (Other)
  Sender: FDA-Public Use
  Company Number: JP-ACTELION-A-CH2013-85541

PATIENT
  Age: 78 Year
  Sex: Female

DRUGS (3)
  1. TRACLEER [Suspect]
     Indication: PULMONARY ARTERIAL HYPERTENSION
     Dosage: UNK
     Route: 048
  2. BERAPROST [Suspect]
  3. TADALAFIL [Concomitant]

REACTIONS (4)
  - Cardiac failure congestive [Recovering/Resolving]
  - Gastric antral vascular ectasia [Recovering/Resolving]
  - Influenza [Unknown]
  - Anaemia [Recovering/Resolving]
